FAERS Safety Report 11773204 (Version 1)
Quarter: 2015Q4

REPORT INFORMATION
  Report Type: Spontaneous
  Country: US (occurrence: US)
  Receive Date: 20151124
  Receipt Date: 20151124
  Transmission Date: 20160304
  Serious: Yes (Other)
  Sender: FDA-Public Use
  Company Number: US-TARO-2015TAR00950

PATIENT
  Age: 63 Year
  Sex: Female

DRUGS (6)
  1. KEVEYIS [Suspect]
     Active Substance: DICHLORPHENAMIDE
     Indication: GENE MUTATION
     Dosage: 25 MG, UNK
     Route: 048
     Dates: start: 20151001, end: 20151001
  2. KEVEYIS [Suspect]
     Active Substance: DICHLORPHENAMIDE
     Dosage: 50 MG, 2X/DAY
     Route: 048
     Dates: start: 20151003, end: 20151003
  3. UNSPECIFIED SUPPLEMENT(S) [Concomitant]
  4. UNSPECIFIED PAIN MEDICATION(S) [Concomitant]
  5. KEVEYIS [Suspect]
     Active Substance: DICHLORPHENAMIDE
     Dosage: 50 MG, 1X/DAY
     Route: 048
     Dates: start: 20151002, end: 20151002
  6. UNSPECIFIED VITAMIN(S) [Concomitant]

REACTIONS (9)
  - Paralysis [Not Recovered/Not Resolved]
  - Asthenia [Not Recovered/Not Resolved]
  - Hallucination [Recovered/Resolved]
  - Cardiac discomfort [Recovered/Resolved]
  - Insomnia [Not Recovered/Not Resolved]
  - Pain [Recovered/Resolved]
  - Movement disorder [Recovered/Resolved]
  - Irregular breathing [Recovered/Resolved]
  - Underdose [Recovered/Resolved]

NARRATIVE: CASE EVENT DATE: 201510
